FAERS Safety Report 22205290 (Version 1)
Quarter: 2023Q2

REPORT INFORMATION
  Report Type: Spontaneous
  Country: FR (occurrence: FR)
  Receive Date: 20230413
  Receipt Date: 20230413
  Transmission Date: 20230721
  Serious: Yes (Death, Other)
  Sender: FDA-Public Use
  Company Number: FR-SA-2023SA110468

PATIENT
  Age: 26 Year
  Sex: Female

DRUGS (4)
  1. INSULIN GLARGINE [Suspect]
     Active Substance: INSULIN GLARGINE
     Indication: Suicide attempt
     Dosage: UNK
  2. TIAPRIDE HYDROCHLORIDE [Suspect]
     Active Substance: TIAPRIDE HYDROCHLORIDE
     Indication: Suicide attempt
     Dosage: UNK
  3. LOXAPINE [Suspect]
     Active Substance: LOXAPINE
     Dosage: UNK
  4. NORDAZEPAM [Suspect]
     Active Substance: NORDAZEPAM
     Dosage: UNK

REACTIONS (4)
  - Asphyxia [Fatal]
  - Hypoglycaemia [Fatal]
  - Cyanosis [Fatal]
  - Intentional overdose [Fatal]
